FAERS Safety Report 6194169-9 (Version None)
Quarter: 2009Q2

REPORT INFORMATION
  Report Type: 
  Country: None (occurrence: None)
  Receive Date: 20090518
  Receipt Date: 20090511
  Transmission Date: 20091009
  Serious: Yes (Hospitalization, Other)
  Sender: FDA-Public Use
  Company Number: CA-JNJCH-2009008769

PATIENT
  Age: 68 Year
  Sex: Female

DRUGS (2)
  1. VISINE ALLERGY RELIEF [Suspect]
     Indication: DRUG USE FOR UNKNOWN INDICATION
     Dosage: TEXT:UNSPECIFIED
     Route: 047
     Dates: start: 20090326, end: 20090327
  2. ALL OTHER THERAPEUTIC PRODUCTS [Suspect]
     Indication: INTRAOCULAR LENS IMPLANT
     Dosage: TEXT:NOT APPLICABLE
     Route: 047

REACTIONS (3)
  - BLINDNESS TRANSIENT [None]
  - BLOOD DISORDER [None]
  - MEDICATION ERROR [None]
